FAERS Safety Report 14318734 (Version 1)
Quarter: 2017Q4

REPORT INFORMATION
  Report Type: Spontaneous
  Country: TR (occurrence: TR)
  Receive Date: 20171222
  Receipt Date: 20171222
  Transmission Date: 20180321
  Serious: Yes (Other)
  Sender: FDA-Public Use
  Company Number: TR-BAYER-2017-242125

PATIENT
  Age: 33 Year
  Sex: Female
  Weight: 65 kg

DRUGS (1)
  1. YAZZ 24+4 [Suspect]
     Active Substance: DROSPIRENONE\ETHINYL ESTRADIOL
     Indication: POLYCYSTIC OVARIES
     Dosage: UNK
     Route: 048
     Dates: start: 2013

REACTIONS (7)
  - Myopia [None]
  - Product use in unapproved indication [None]
  - Vision blurred [Not Recovered/Not Resolved]
  - Off label use [None]
  - Drug effective for unapproved indication [None]
  - Gastric disorder [Not Recovered/Not Resolved]
  - Blindness [Not Recovered/Not Resolved]
